FAERS Safety Report 8423073-8 (Version None)
Quarter: 2012Q2

REPORT INFORMATION
  Report Type: 
  Country: None (occurrence: None)
  Receive Date: 20120608
  Receipt Date: 20120601
  Transmission Date: 20120825
  Serious: Yes (Other)
  Sender: FDA-Public Use
  Company Number: IN-JNJFOC-20120601447

PATIENT
  Sex: Male
  Weight: 59 kg

DRUGS (4)
  1. VITAMIN B COMPLEX CAP [Concomitant]
     Route: 048
     Dates: start: 20080707
  2. MESALAMINE [Concomitant]
     Indication: COLITIS ULCERATIVE
     Route: 048
     Dates: start: 20080307
  3. GOLIMUMAB [Suspect]
     Indication: COLITIS ULCERATIVE
     Route: 058
     Dates: end: 20120411
  4. GOLIMUMAB [Suspect]
     Route: 058

REACTIONS (2)
  - PLEURAL EFFUSION [None]
  - TUBERCULOSIS [None]
